FAERS Safety Report 12282170 (Version 1)
Quarter: 2016Q2

REPORT INFORMATION
  Report Type: Spontaneous
  Country: US (occurrence: None)
  Receive Date: 20160418
  Receipt Date: 20160418
  Transmission Date: 20160815
  Serious: Yes (Life-Threatening, Hospitalization)
  Sender: FDA-Public Use
  Company Number: None

PATIENT
  Age: 59 Year
  Sex: Female
  Weight: 110.6 kg

DRUGS (2)
  1. NIVOLUMAB [Suspect]
     Active Substance: NIVOLUMAB
  2. IPILIMUMAB [Suspect]
     Active Substance: IPILIMUMAB
     Dosage: INTRAVENOUS (NOT OTHERWISE SPECIFIED)
     Route: 042
     Dates: start: 20151023, end: 20151209

REACTIONS (10)
  - Duodenitis [None]
  - Enteritis [None]
  - Duodenal ulcer [None]
  - Abscess intestinal [None]
  - Colitis [None]
  - Small intestinal obstruction [None]
  - Dehydration [None]
  - Inflammatory bowel disease [None]
  - Jejunal ulcer [None]
  - Toxicity to various agents [None]

NARRATIVE: CASE EVENT DATE: 20151222
